FAERS Safety Report 14676992 (Version 5)
Quarter: 2018Q2

REPORT INFORMATION
  Report Type: Report from Study
  Country: US (occurrence: US)
  Receive Date: 20180324
  Receipt Date: 20180427
  Transmission Date: 20180711
  Serious: Yes (Hospitalization)
  Sender: FDA-Public Use
  Company Number: US-CONCORDIA PHARMACEUTICALS INC.-GSH201803-000960

PATIENT
  Age: 68 Year
  Sex: Female
  Weight: 81.1 kg

DRUGS (29)
  1. HYDROXYCHLOROQUINE [Concomitant]
     Active Substance: HYDROXYCHLOROQUINE
     Indication: RHEUMATOID ARTHRITIS
     Route: 048
     Dates: start: 201701
  2. FILGOTINIB VS PLACEBO [Suspect]
     Active Substance: FILGOTINIB
     Route: 048
     Dates: start: 20180216, end: 20180302
  3. MECLIZINE [Concomitant]
     Active Substance: MECLIZINE HYDROCHLORIDE
     Dates: start: 20180210
  4. NAPROXEN. [Concomitant]
     Active Substance: NAPROXEN
  5. PANTOPRAZOLE [Concomitant]
     Active Substance: PANTOPRAZOLE
  6. DEXTROSE. [Concomitant]
     Active Substance: DEXTROSE
     Dates: start: 20180208, end: 20180209
  7. FILGOTINIB VS PLACEBO [Suspect]
     Active Substance: FILGOTINIB
     Indication: RHEUMATOID ARTHRITIS
     Route: 048
     Dates: start: 20170914, end: 20180209
  8. DOXYCYCLINE. [Concomitant]
     Active Substance: DOXYCYCLINE
     Indication: BRONCHITIS
     Route: 048
     Dates: start: 20180126
  9. ASPIRIN. [Concomitant]
     Active Substance: ASPIRIN
     Dates: start: 2015
  10. HYDROMORPHONE [Concomitant]
     Active Substance: HYDROMORPHONE
     Dates: start: 20180208, end: 20180209
  11. OXYCODONE [Concomitant]
     Active Substance: OXYCODONE
     Dates: start: 20180208, end: 20180209
  12. CLINDAMYCIN. [Concomitant]
     Active Substance: CLINDAMYCIN
     Dates: start: 20180208, end: 20180209
  13. LORATADINE. [Concomitant]
     Active Substance: LORATADINE
     Dates: start: 20180210
  14. ATENOLOL. [Concomitant]
     Active Substance: ATENOLOL
     Dates: start: 2002
  15. MAG AL PLUS XS [Concomitant]
     Dates: start: 20180208, end: 20180209
  16. HYDROXYCHLOROQUINE [Suspect]
     Active Substance: HYDROXYCHLOROQUINE
     Indication: RHEUMATOID ARTHRITIS
     Route: 048
     Dates: start: 201701
  17. HYDROCODONE [Concomitant]
     Active Substance: HYDROCODONE
     Dates: start: 20180210, end: 20180215
  18. ACETAMINOPHEN. [Concomitant]
     Active Substance: ACETAMINOPHEN
     Dates: start: 20180208, end: 20180209
  19. ENOXAPARIN [Concomitant]
     Active Substance: ENOXAPARIN
     Dates: start: 20180208, end: 20180209
  20. FERROUS SULFATE. [Concomitant]
     Active Substance: FERROUS SULFATE
     Dates: start: 20180208, end: 20180209
  21. METHOTREXATE. [Concomitant]
     Active Substance: METHOTREXATE
     Indication: RHEUMATOID ARTHRITIS
     Route: 048
     Dates: start: 2009
  22. LEVOTHYROXINE. [Concomitant]
     Active Substance: LEVOTHYROXINE
     Dates: start: 2005
  23. AMITRIPTYLINE [Concomitant]
     Active Substance: AMITRIPTYLINE
     Dates: start: 1987
  24. ESTRACE [Concomitant]
     Active Substance: ESTRADIOL
     Dates: start: 2015
  25. LEUCOVORIN CALCIUM. [Concomitant]
     Active Substance: LEUCOVORIN CALCIUM
     Indication: RHEUMATOID ARTHRITIS
     Route: 048
     Dates: start: 201706
  26. MYRBETRIQ [Concomitant]
     Active Substance: MIRABEGRON
     Indication: RHEUMATOID ARTHRITIS
     Route: 048
     Dates: start: 201706
  27. BISACODYL. [Concomitant]
     Active Substance: BISACODYL
     Dates: start: 20180208, end: 20180209
  28. ONDANSETRON [Concomitant]
     Active Substance: ONDANSETRON
     Dates: start: 20180208, end: 20180209
  29. SIMETHICONE (DIMETHICONE) [Concomitant]
     Active Substance: DIMETHICONE

REACTIONS (13)
  - Laceration [Recovered/Resolved]
  - Red blood cell count decreased [None]
  - Contusion [None]
  - Prothrombin time prolonged [None]
  - Fall [None]
  - Vertigo [Recovered/Resolved]
  - Haematocrit decreased [None]
  - Haemoglobin decreased [None]
  - White blood cell count increased [None]
  - Concussion [Recovering/Resolving]
  - Rib fracture [Not Recovered/Not Resolved]
  - Blood pressure diastolic decreased [None]
  - Therapy cessation [None]

NARRATIVE: CASE EVENT DATE: 20180208
